FAERS Safety Report 9237252 (Version 1)
Quarter: 2013Q2

REPORT INFORMATION
  Report Type: Spontaneous
  Country: NZ (occurrence: NZ)
  Receive Date: 20130417
  Receipt Date: 20130417
  Transmission Date: 20140414
  Serious: Yes (Other)
  Sender: FDA-Public Use
  Company Number: NZ-ABBOTT-13P-118-1068498-00

PATIENT
  Sex: Female

DRUGS (4)
  1. HUMIRA [Suspect]
     Indication: RHEUMATOID ARTHRITIS
     Dates: start: 20130307, end: 20130323
  2. LEFLUNOMIDE [Concomitant]
     Indication: PRODUCT USED FOR UNKNOWN INDICATION
  3. PLAQUENIL [Concomitant]
     Indication: PRODUCT USED FOR UNKNOWN INDICATION
  4. CALCITRIOL [Concomitant]
     Indication: PRODUCT USED FOR UNKNOWN INDICATION

REACTIONS (11)
  - Fatigue [Recovered/Resolved]
  - Disturbance in attention [Recovered/Resolved]
  - Bone pain [Unknown]
  - Dysphonia [Recovered/Resolved]
  - Tooth abscess [Unknown]
  - Pain [Recovered/Resolved]
  - Arthralgia [Unknown]
  - Injection site pain [Unknown]
  - Adverse event [Unknown]
  - Myalgia [Unknown]
  - Pyrexia [Unknown]
